FAERS Safety Report 7920479-8 (Version None)
Quarter: 2011Q4

REPORT INFORMATION
  Report Type: 
  Country: None (occurrence: None)
  Receive Date: 20111117
  Receipt Date: 20111109
  Transmission Date: 20120403
  Serious: Yes (Other)
  Sender: FDA-Public Use
  Company Number: PHHY2011BR099593

PATIENT
  Age: 11 Year
  Sex: Male

DRUGS (4)
  1. RITALIN [Suspect]
     Dosage: 1 DF, BID
     Route: 048
  2. RITALIN [Suspect]
     Indication: AGGRESSION
     Dosage: 1 DF, QD
     Route: 048
  3. RITALIN [Suspect]
     Dosage: 4-6 DF, QD
     Route: 048
  4. RITALIN LA [Suspect]
     Indication: AGGRESSION
     Dosage: 1 DF, QD
     Route: 048

REACTIONS (5)
  - APPETITE DISORDER [None]
  - AGGRESSION [None]
  - ANAEMIA [None]
  - INTERMITTENT EXPLOSIVE DISORDER [None]
  - NAUSEA [None]
